FAERS Safety Report 5913579-5 (Version None)
Quarter: 2008Q4

REPORT INFORMATION
  Report Type: 
  Country: None (occurrence: None)
  Receive Date: 20081007
  Receipt Date: 20080924
  Transmission Date: 20090506
  Serious: Yes (Hospitalization)
  Sender: FDA-Public Use
  Company Number: 2008S1000437

PATIENT
  Age: 48 Year
  Sex: Male
  Weight: 52.9801 kg

DRUGS (2)
  1. ACITRETIN [Suspect]
     Indication: SKIN DISORDER
     Dosage: 60 MG QD PO; 30 MG QD PO
     Route: 048
     Dates: end: 20040101
  2. ACITRETIN [Suspect]
     Indication: SKIN DISORDER
     Dosage: 60 MG QD PO; 30 MG QD PO
     Route: 048
     Dates: start: 19830101

REACTIONS (3)
  - ARTHROPATHY [None]
  - EMPHYSEMA [None]
  - GAIT DISTURBANCE [None]
